FAERS Safety Report 15988812 (Version 1)
Quarter: 2019Q1

REPORT INFORMATION
  Report Type: Report from Study
  Country: US (occurrence: US)
  Receive Date: 20190221
  Receipt Date: 20190221
  Transmission Date: 20190418
  Serious: Yes (Other)
  Sender: FDA-Public Use
  Company Number: US-GILEAD-2019-0392068

PATIENT
  Age: 73 Year
  Sex: Female

DRUGS (3)
  1. TYVASO [Concomitant]
     Active Substance: TREPROSTINIL
  2. AMBRISENTAN [Suspect]
     Active Substance: AMBRISENTAN
     Indication: PRODUCT USED FOR UNKNOWN INDICATION
     Dosage: 5 MG, QD
     Route: 065
     Dates: start: 20180809
  3. TADALAFIL. [Concomitant]
     Active Substance: TADALAFIL

REACTIONS (2)
  - Surgery [Unknown]
  - Cough [Not Recovered/Not Resolved]

NARRATIVE: CASE EVENT DATE: 201902
